FAERS Safety Report 4437756-8 (Version None)
Quarter: 2004Q3

REPORT INFORMATION
  Report Type: 
  Country: None (occurrence: None)
  Receive Date: 20040831
  Receipt Date: 20030902
  Transmission Date: 20050211
  Serious: No
  Sender: FDA-Public Use
  Company Number: US-GLAXOSMITHKLINE-A0424157A

PATIENT
  Age: 29 Year
  Sex: Female

DRUGS (1)
  1. ZOVIRAX [Suspect]
     Indication: ENCEPHALITIS HERPES
     Route: 042

REACTIONS (1)
  - PHLEBITIS [None]
